FAERS Safety Report 14418929 (Version 2)
Quarter: 2018Q2

REPORT INFORMATION
  Report Type: Spontaneous
  Country: ES (occurrence: ES)
  Receive Date: 20180122
  Receipt Date: 20180504
  Transmission Date: 20180711
  Serious: Yes (Other)
  Sender: FDA-Public Use
  Company Number: ES-REGENERON PHARMACEUTICALS, INC.-2018-11442

PATIENT

DRUGS (10)
  1. EYLEA [Suspect]
     Active Substance: AFLIBERCEPT
     Dosage: 3RD DOSE, ONCE
     Dates: start: 201408, end: 201408
  2. EYLEA [Suspect]
     Active Substance: AFLIBERCEPT
     Dosage: 5TH DOSE, ONCE
     Dates: start: 201411, end: 201411
  3. EYLEA [Suspect]
     Active Substance: AFLIBERCEPT
     Dosage: 9TH DOSE, ONCE
     Dates: start: 201506, end: 201506
  4. EYLEA [Suspect]
     Active Substance: AFLIBERCEPT
     Dosage: 20TH DOSE, ONCE
     Dates: start: 201711, end: 201711
  5. EYLEA [Suspect]
     Active Substance: AFLIBERCEPT
     Dosage: 8TH DOSE, ONCE
     Dates: start: 201504, end: 201504
  6. EYLEA [Suspect]
     Active Substance: AFLIBERCEPT
     Dosage: 13TH DOSE, ONCE
     Dates: start: 201601, end: 201601
  7. EYLEA [Suspect]
     Active Substance: AFLIBERCEPT
     Indication: AGE-RELATED MACULAR DEGENERATION
     Dosage: 1ST DOSE, ONCE
     Dates: start: 201406, end: 201406
  8. EYLEA [Suspect]
     Active Substance: AFLIBERCEPT
     Dosage: 2ND DOSE, ONCE
     Dates: start: 201407, end: 201407
  9. EYLEA [Suspect]
     Active Substance: AFLIBERCEPT
     Dosage: 4TH DOSE, ONCE
     Dates: start: 201410, end: 201410
  10. EYLEA [Suspect]
     Active Substance: AFLIBERCEPT
     Dosage: 11ST DOSE, ONCE
     Dates: start: 201510, end: 201510

REACTIONS (2)
  - Age-related macular degeneration [Unknown]
  - Off label use [Unknown]
